FAERS Safety Report 20171079 (Version 1)
Quarter: 2021Q4

REPORT INFORMATION
  Report Type: Report from Study
  Country: US (occurrence: US)
  Receive Date: 20211210
  Receipt Date: 20211210
  Transmission Date: 20220303
  Serious: Yes (Other)
  Sender: FDA-Public Use
  Company Number: US-TEVA-2021-US-1967961

PATIENT
  Age: 56 Year
  Sex: Female

DRUGS (1)
  1. COPAXONE [Suspect]
     Active Substance: GLATIRAMER ACETATE
     Route: 065
     Dates: start: 20211015

REACTIONS (9)
  - Multiple sclerosis relapse [Unknown]
  - Psoriatic arthropathy [Unknown]
  - Anaphylactic shock [Unknown]
  - Injection site erythema [Unknown]
  - Injection site urticaria [Unknown]
  - Psoriasis [Unknown]
  - Injection site swelling [Not Recovered/Not Resolved]
  - Injection site discolouration [Not Recovered/Not Resolved]
  - Nausea [Unknown]

NARRATIVE: CASE EVENT DATE: 20211001
